FAERS Safety Report 19458791 (Version 1)
Quarter: 2021Q2

REPORT INFORMATION
  Report Type: Spontaneous
  Country: US (occurrence: US)
  Receive Date: 20210624
  Receipt Date: 20210624
  Transmission Date: 20210717
  Serious: No
  Sender: FDA-Public Use
  Company Number: US-CELGENEUS-USA-20210603984

PATIENT
  Age: 87 Year
  Sex: Female
  Weight: 51.76 kg

DRUGS (4)
  1. REVLIMID [Suspect]
     Active Substance: LENALIDOMIDE
     Indication: OFF LABEL USE
  2. ESTRADIOL. [Suspect]
     Active Substance: ESTRADIOL
     Indication: PRODUCT USED FOR UNKNOWN INDICATION
     Route: 065
  3. REVLIMID [Suspect]
     Active Substance: LENALIDOMIDE
     Indication: FOLLICULAR LYMPHOMA
     Dosage: 20 MILLIGRAM
     Route: 048
     Dates: start: 202105
  4. RITUXAN [Concomitant]
     Active Substance: RITUXIMAB
     Indication: PRODUCT USED FOR UNKNOWN INDICATION
     Route: 065

REACTIONS (8)
  - Fatigue [Unknown]
  - Dyspnoea [Unknown]
  - Dry mouth [Unknown]
  - Dry skin [Unknown]
  - Muscle spasms [Unknown]
  - Hot flush [Unknown]
  - Dysgeusia [Unknown]
  - Nervousness [Unknown]

NARRATIVE: CASE EVENT DATE: 20210512
